FAERS Safety Report 6135848-9 (Version None)
Quarter: 2009Q1

REPORT INFORMATION
  Report Type: 
  Country: None (occurrence: None)
  Receive Date: 20090327
  Receipt Date: 20090319
  Transmission Date: 20090719
  Serious: Yes (Other)
  Sender: FDA-Public Use
  Company Number: US-ABBOTT-09P-163-0563579-00

PATIENT
  Sex: Female
  Weight: 61.29 kg

DRUGS (5)
  1. LUPRON DEPOT [Suspect]
     Indication: ENDOMETRIOSIS
     Dates: start: 20071101, end: 20080301
  2. XOPENEX [Concomitant]
     Indication: ASTHMA
  3. ADVAIR HFA [Concomitant]
     Indication: ASTHMA
  4. ELMIRON [Concomitant]
     Indication: CYSTITIS INTERSTITIAL
  5. LOVOXYL [Concomitant]
     Indication: HYPOTHYROIDISM

REACTIONS (9)
  - FOOT FRACTURE [None]
  - HOT FLUSH [None]
  - JOINT SPRAIN [None]
  - NEUROPATHY PERIPHERAL [None]
  - NIGHT SWEATS [None]
  - PAIN IN EXTREMITY [None]
  - STRESS FRACTURE [None]
  - TARSAL TUNNEL SYNDROME [None]
  - TENDONITIS [None]
